FAERS Safety Report 9290423 (Version 1)
Quarter: 2013Q2

REPORT INFORMATION
  Report Type: Spontaneous
  Country: GB (occurrence: GB)
  Receive Date: 20130515
  Receipt Date: 20130515
  Transmission Date: 20140414
  Serious: Yes (Death, Other)
  Sender: FDA-Public Use
  Company Number: GB-CELGENEUS-167-FK228-13050172

PATIENT
  Sex: 0

DRUGS (1)
  1. ROMIDEPSIN [Suspect]
     Indication: MYCOSIS FUNGOIDES REFRACTORY
     Dosage: 14 MILLIGRAM/SQ. METER
     Route: 041

REACTIONS (32)
  - Dyspnoea [Fatal]
  - Leukocytosis [Unknown]
  - Bradyarrhythmia [Unknown]
  - Urine output decreased [Unknown]
  - Cardiopulmonary failure [Fatal]
  - Renal failure acute [Fatal]
  - Cardiac failure [Unknown]
  - Anaemia [Unknown]
  - Tumour lysis syndrome [Unknown]
  - Oral candidiasis [Unknown]
  - Oropharyngeal candidiasis [Unknown]
  - Hyperglycaemia [Unknown]
  - Pyrexia [Unknown]
  - Electrocardiogram ST segment depression [Unknown]
  - Sepsis [Unknown]
  - Drug eruption [Unknown]
  - Mycosis fungoides refractory [Fatal]
  - Malaise [Unknown]
  - Hypotension [Unknown]
  - Syncope [Unknown]
  - Pharyngitis [Unknown]
  - Diarrhoea [Unknown]
  - Electrocardiogram QT prolonged [Unknown]
  - Fatigue [Unknown]
  - Vomiting [Unknown]
  - Dysgeusia [Unknown]
  - Decreased appetite [Unknown]
  - Asthenia [Unknown]
  - Thrombocytopenia [Unknown]
  - Nausea [Unknown]
  - Ageusia [Unknown]
  - Headache [Unknown]
